FAERS Safety Report 9224869 (Version 1)
Quarter: 2013Q2

REPORT INFORMATION
  Report Type: Spontaneous
  Country: DE (occurrence: DE)
  Receive Date: 20130411
  Receipt Date: 20130411
  Transmission Date: 20140414
  Serious: Yes (Hospitalization)
  Sender: FDA-Public Use
  Company Number: DE-PFIZER INC-2013109186

PATIENT
  Age: 72 Year
  Sex: Female

DRUGS (3)
  1. CELEBREX [Suspect]
     Indication: NERVE COMPRESSION
     Dosage: UNK
  2. CELEBREX [Suspect]
     Indication: PAIN
  3. RAMIPRIL [Concomitant]
     Dosage: UNK

REACTIONS (4)
  - Liver function test abnormal [Not Recovered/Not Resolved]
  - Disorientation [Not Recovered/Not Resolved]
  - Dizziness [Not Recovered/Not Resolved]
  - Chromaturia [Not Recovered/Not Resolved]
